FAERS Safety Report 4812466-3 (Version None)
Quarter: 2005Q4

REPORT INFORMATION
  Report Type: 
  Country: None (occurrence: None)
  Receive Date: 20051028
  Receipt Date: 20050202
  Transmission Date: 20060501
  Serious: No
  Sender: FDA-Public Use
  Company Number: US-GLAXOSMITHKLINE-A0543521A

PATIENT
  Age: 8 Year
  Sex: Male
  Weight: 21.8 kg

DRUGS (4)
  1. ADVAIR DISKUS 100/50 [Suspect]
     Indication: ASTHMA
     Dosage: 1PUFF PER DAY
     Route: 055
     Dates: start: 20031129
  2. SINGULAIR [Concomitant]
  3. PULMICORT [Concomitant]
  4. XOPENEX [Concomitant]

REACTIONS (1)
  - PRURITUS [None]
